FAERS Safety Report 10882626 (Version 1)
Quarter: 2015Q1

REPORT INFORMATION
  Report Type: Spontaneous
  Country: US (occurrence: None)
  Receive Date: 20150226
  Receipt Date: 20150226
  Transmission Date: 20150721
  Serious: Yes (Hospitalization)
  Sender: FDA-Public Use
  Company Number: 2015HINLIT0163

PATIENT
  Age: 24 Year
  Sex: Female

DRUGS (5)
  1. CLOZAPINE (CLOZAPINE) [Suspect]
     Active Substance: CLOZAPINE
     Indication: PSYCHOTIC DISORDER
  2. LITHIUM [Suspect]
     Active Substance: LITHIUM CARBONATE
     Indication: PRODUCT USED FOR UNKNOWN INDICATION
  3. PALIPERIDONE [Suspect]
     Active Substance: PALIPERIDONE
     Indication: PSYCHOTIC DISORDER
  4. PALIPERIDONE [Suspect]
     Active Substance: PALIPERIDONE
     Indication: AFFECTIVE DISORDER
  5. CLOZAPINE (CLOZAPINE) [Suspect]
     Active Substance: CLOZAPINE
     Indication: AFFECTIVE DISORDER

REACTIONS (1)
  - Neuroleptic malignant syndrome [None]
